FAERS Safety Report 20444693 (Version 1)
Quarter: 2022Q1

REPORT INFORMATION
  Report Type: Spontaneous
  Country: US (occurrence: None)
  Receive Date: 20220207
  Receipt Date: 20220207
  Transmission Date: 20220423
  Serious: Yes (Disabling)
  Sender: FDA-Public Use
  Company Number: None

PATIENT
  Age: 28 Year
  Sex: Female
  Weight: 56.25 kg

DRUGS (1)
  1. BUPRENORPHINE\NALOXONE [Suspect]
     Active Substance: BUPRENORPHINE\NALOXONE
     Indication: Drug dependence
     Dosage: OTHER QUANTITY : 1 FILM;?FREQUENCY : TWICE A DAY;?
     Route: 060
     Dates: start: 20180831, end: 20210814

REACTIONS (7)
  - Tooth fracture [None]
  - Tooth extraction [None]
  - Bone graft [None]
  - Economic problem [None]
  - Dental caries [None]
  - Mental impairment [None]
  - Emotional distress [None]

NARRATIVE: CASE EVENT DATE: 20211021
